FAERS Safety Report 6829525-6 (Version None)
Quarter: 2010Q3

REPORT INFORMATION
  Report Type: 
  Country: None (occurrence: None)
  Receive Date: 20100709
  Receipt Date: 20070323
  Transmission Date: 20110219
  Serious: No
  Sender: FDA-Public Use
  Company Number: US-PFIZER INC-2007012851

PATIENT
  Sex: Male
  Weight: 76.2 kg

DRUGS (8)
  1. CHANTIX [Suspect]
     Indication: SMOKING CESSATION THERAPY
     Route: 048
     Dates: start: 20070211, end: 20070211
  2. CODEINE SULFATE [Concomitant]
     Indication: NEPHROLITHIASIS
  3. ALLOPURINOL [Concomitant]
     Indication: CALCULUS URINARY
  4. LORTAB [Concomitant]
  5. VERAPAMIL [Concomitant]
     Indication: HYPERTENSION
  6. DIOVANE [Concomitant]
     Indication: HYPERTENSION
  7. LIPITOR [Concomitant]
  8. WELLBUTRIN [Concomitant]

REACTIONS (4)
  - HYPERSOMNIA [None]
  - INSOMNIA [None]
  - MALAISE [None]
  - MENTAL DISORDER [None]
